FAERS Safety Report 4587505-8 (Version None)
Quarter: 2005Q1

REPORT INFORMATION
  Report Type: 
  Country: None (occurrence: None)
  Receive Date: 20050215
  Receipt Date: 20050201
  Transmission Date: 20050727
  Serious: Yes (Death)
  Sender: FDA-Public Use
  Company Number: CHPA2005US00574

PATIENT
  Age: 99 Year
  Sex: Female

DRUGS (1)
  1. EX-LAX MAX STR LAX PILLS SENNA (NCH)(SENNA GLYCOSIDES) (CA SALTS OF PU [Suspect]
     Indication: CONSTIPATION
     Dosage: 25 MG ONCE/SINGLE , ORAL
     Route: 048
     Dates: start: 20050131, end: 20050131

REACTIONS (2)
  - DIARRHOEA [None]
  - VOMITING [None]
